FAERS Safety Report 5387287-6 (Version None)
Quarter: 2007Q3

REPORT INFORMATION
  Report Type: 
  Country: None (occurrence: None)
  Receive Date: 20070706
  Receipt Date: 20070524
  Transmission Date: 20080115
  Serious: Yes (Other)
  Sender: FDA-Public Use
  Company Number: PHEH2007US07992

PATIENT
  Sex: Male

DRUGS (3)
  1. TEKTURNA [Suspect]
     Indication: HYPERTENSION
     Dosage: 150 MG, QD, ORAL
     Route: 048
     Dates: start: 20070510, end: 20070517
  2. NORVASC [Concomitant]
  3. VYTORIN [Concomitant]

REACTIONS (1)
  - OEDEMA [None]
